FAERS Safety Report 20692812 (Version 1)
Quarter: 2022Q2

REPORT INFORMATION
  Report Type: Other
  Country: DE (occurrence: None)
  Receive Date: 20220409
  Receipt Date: 20220409
  Transmission Date: 20220721
  Serious: No
  Sender: FDA-Public Use
  Company Number: DE-ROCHE-3068196

PATIENT
  Age: 37 Year
  Sex: Female
  Weight: 67 kg

DRUGS (7)
  1. OCRELIZUMAB [Suspect]
     Active Substance: OCRELIZUMAB
     Indication: Relapsing multiple sclerosis
     Route: 042
     Dates: start: 20200319, end: 20200402
  2. OCRELIZUMAB [Suspect]
     Active Substance: OCRELIZUMAB
     Route: 042
     Dates: start: 20200903
  3. AERIUS [Concomitant]
     Indication: Prophylaxis
     Route: 048
     Dates: start: 20200318
  4. PREDNISOLONE [Concomitant]
     Active Substance: PREDNISOLONE
     Indication: Prophylaxis
     Route: 042
     Dates: start: 20200319
  5. CHOLECALCIFEROL [Concomitant]
     Active Substance: CHOLECALCIFEROL
     Indication: Vitamin D deficiency
     Route: 048
  6. FERRO-SANOL DUODENAL [Concomitant]
     Active Substance: FERROUS GLYCINE SULFATE
     Indication: Anaemia
     Route: 048
     Dates: start: 202011
  7. MAGNESIUM [Concomitant]
     Active Substance: MAGNESIUM
     Indication: Muscular weakness
     Route: 048
     Dates: start: 20220223

REACTIONS (1)
  - COVID-19 [Recovering/Resolving]

NARRATIVE: CASE EVENT DATE: 20210120
